FAERS Safety Report 4767017-9 (Version None)
Quarter: 2005Q3

REPORT INFORMATION
  Report Type: 
  Country: None (occurrence: None)
  Receive Date: 20050908
  Receipt Date: 20050812
  Transmission Date: 20060218
  Serious: Yes (Other)
  Sender: FDA-Public Use
  Company Number: 6016630

PATIENT
  Age: 91 Year
  Sex: Female

DRUGS (4)
  1. DAPA-TABS (2,5MG, TABLET) (INDAPAMIDE) [Suspect]
     Indication: ESSENTIAL HYPERTENSION
     Dosage: 2,5 MG (2,5 MG,1 D),ORAL
     Route: 048
     Dates: end: 20010606
  2. LANOXIN (62,5 MG) (DIGOXIN) [Concomitant]
  3. FRUSEMIDE (40 MG) [Concomitant]
  4. TRITACE (10 MG) (RAMIPRIL) [Concomitant]

REACTIONS (2)
  - COMA [None]
  - HYPONATRAEMIA [None]
